FAERS Safety Report 4836801-5 (Version None)
Quarter: 2005Q4

REPORT INFORMATION
  Report Type: 
  Country: None (occurrence: None)
  Receive Date: 20051123
  Receipt Date: 20051116
  Transmission Date: 20060501
  Serious: Yes (Death, Hospitalization)
  Sender: FDA-Public Use
  Company Number: JP-MERCK-0511USA03441

PATIENT
  Age: 65 Year
  Sex: Male

DRUGS (6)
  1. DECADRON [Suspect]
     Route: 065
  2. CYCLOPHOSPHAMIDE [Suspect]
     Route: 065
  3. BLEOMYCIN [Suspect]
     Route: 065
  4. DOXORUBICIN HCL [Suspect]
     Route: 065
  5. VINCRISTINE SULFATE [Suspect]
     Route: 065
  6. ETOPOSIDE [Suspect]
     Route: 065

REACTIONS (6)
  - ADVERSE EVENT [None]
  - METASTASES TO ADRENALS [None]
  - METASTASES TO LUNG [None]
  - METASTASES TO OESOPHAGUS [None]
  - METASTASES TO THORAX [None]
  - METASTASES TO TRACHEA [None]
